FAERS Safety Report 19231569 (Version 1)
Quarter: 2021Q2

REPORT INFORMATION
  Report Type: Spontaneous
  Country: NL (occurrence: NL)
  Receive Date: 20210507
  Receipt Date: 20210507
  Transmission Date: 20210717
  Serious: Yes (Death, Hospitalization)
  Sender: FDA-Public Use
  Company Number: NL-SA-2021SA152245

PATIENT
  Sex: Male
  Weight: 80 kg

DRUGS (3)
  1. IRINOTECAN [Suspect]
     Active Substance: IRINOTECAN
     Indication: PANCREATIC CARCINOMA
     Dosage: 180 MG/M2, QOW [180MG / M2 (ONCE EVERY 2 WEEKS AS PART OF FOLFIRINOX TREATMENTS)]
     Dates: start: 20200205
  2. OXALIPLATIN. [Suspect]
     Active Substance: OXALIPLATIN
     Indication: PANCREATIC CARCINOMA
     Dosage: 63.75 MG/M2, QOW [63.75MG / M2 (1X PER 2 WEEKS IN THE CONTEXT OF FOLFIRINOX TREATMENTS)]
     Dates: start: 20200205
  3. FLUOROURACIL. [Suspect]
     Active Substance: FLUOROURACIL
     Indication: PANCREATIC CARCINOMA
     Dosage: 2800 MG/M2 [2800MG / M2 (3 DAYS AND THEN 11 DAYS NOT, THEN 3 DAYS AGAIN AS PART OF FOLFIRINOX TREATM
     Dates: start: 20200205

REACTIONS (1)
  - Pneumonitis [Fatal]
